FAERS Safety Report 5575950-3 (Version None)
Quarter: 2007Q4

REPORT INFORMATION
  Report Type: 
  Country: None (occurrence: None)
  Receive Date: 20071226
  Receipt Date: 20071211
  Transmission Date: 20080405
  Serious: Yes (Hospitalization)
  Sender: FDA-Public Use
  Company Number: DSM-2007-01015

PATIENT
  Age: 61 Year
  Sex: Male
  Weight: 73.5 kg

DRUGS (2)
  1. VOTUM (OLMESARTAN MEDOXOMIL) (40 MILLIGRAM, TABLET) (OLMESARTAN MEDOXO [Suspect]
     Indication: HYPERTENSION
     Dosage: 40 MG (40 MG, 1 IN 1 D), ORAL
     Route: 048
     Dates: start: 20071126, end: 20071203
  2. OLMESARTAN MEDOXOMIL [Concomitant]

REACTIONS (6)
  - BENIGN PROSTATIC HYPERPLASIA [None]
  - BLADDER TAMPONADE [None]
  - NEOPLASM RECURRENCE [None]
  - POST PROCEDURAL HAEMORRHAGE [None]
  - URETHRAL MEATUS STENOSIS [None]
  - URETHRAL STENOSIS [None]
